FAERS Safety Report 19780125 (Version 1)
Quarter: 2021Q3

REPORT INFORMATION
  Report Type: Spontaneous
  Country: CN (occurrence: CN)
  Receive Date: 20210902
  Receipt Date: 20210902
  Transmission Date: 20211014
  Serious: Yes (Disabling)
  Sender: FDA-Public Use
  Company Number: CN-PFIZER INC-202101083932

PATIENT
  Age: 74 Year
  Sex: Male
  Weight: 55 kg

DRUGS (2)
  1. EUTHYROX [Concomitant]
     Active Substance: LEVOTHYROXINE SODIUM
     Indication: HYPOTHYROIDISM
     Dosage: 50.000 UG, 1X/DAY
     Route: 048
     Dates: start: 20160801, end: 20210820
  2. MEDROL [Suspect]
     Active Substance: METHYLPREDNISOLONE
     Indication: PITUITARY TUMOUR REMOVAL
     Dosage: 4.000 MG, 1X/DAY
     Route: 048
     Dates: start: 20160801, end: 20210807

REACTIONS (5)
  - Hyponatraemia [Recovering/Resolving]
  - Skin atrophy [Recovering/Resolving]
  - Skin ulcer [Recovering/Resolving]
  - Petechiae [Recovering/Resolving]
  - Hypokalaemia [Recovering/Resolving]

NARRATIVE: CASE EVENT DATE: 20210813
